APPROVED DRUG PRODUCT: TOLTERODINE TARTRATE
Active Ingredient: TOLTERODINE TARTRATE
Strength: 4MG
Dosage Form/Route: CAPSULE, EXTENDED RELEASE;ORAL
Application: A216917 | Product #002 | TE Code: AB
Applicant: UNICHEM LABORATORIES LTD
Approved: Aug 27, 2024 | RLD: No | RS: No | Type: RX